FAERS Safety Report 8578407-0 (Version None)
Quarter: 2012Q3

REPORT INFORMATION
  Report Type: 
  Country: None (occurrence: None)
  Receive Date: 20120808
  Receipt Date: 20120726
  Transmission Date: 20120928
  Serious: No
  Sender: FDA-Public Use
  Company Number: US-BAYER-2012-076576

PATIENT
  Age: 68 Year
  Sex: Female

DRUGS (4)
  1. ZYRTEC [Concomitant]
  2. ALEVE (CAPLET) [Suspect]
     Indication: ARTHRITIS
     Dosage: 2 DF, PRN
     Route: 048
     Dates: start: 20080101
  3. VITAMIN D [Concomitant]
  4. ALEVE (CAPLET) [Suspect]
     Dosage: 2 DF, BID
     Route: 048
     Dates: start: 20110101

REACTIONS (1)
  - NO ADVERSE EVENT [None]
